FAERS Safety Report 6769364-8 (Version None)
Quarter: 2010Q2

REPORT INFORMATION
  Report Type: 
  Country: None (occurrence: None)
  Receive Date: 20100607
  Receipt Date: 20100524
  Transmission Date: 20101027
  Serious: Yes (Hospitalization)
  Sender: FDA-Public Use
  Company Number: B0658171A

PATIENT
  Age: 32 Year
  Sex: Male
  Weight: 93.8039 kg

DRUGS (1)
  1. BUPROPION HCL [Suspect]
     Indication: ATTENTION DEFICIT/HYPERACTIVITY DISORDER
     Dosage: ORAL
     Route: 048

REACTIONS (13)
  - AGITATION [None]
  - BLOOD CREATINE PHOSPHOKINASE INCREASED [None]
  - BLOOD PRESSURE SYSTOLIC INCREASED [None]
  - BODY TEMPERATURE INCREASED [None]
  - CONFUSIONAL STATE [None]
  - CONVULSION [None]
  - DEPRESSION [None]
  - DYSARTHRIA [None]
  - HEART RATE INCREASED [None]
  - INTENTIONAL OVERDOSE [None]
  - LETHARGY [None]
  - RESPIRATORY FATIGUE [None]
  - SUICIDE ATTEMPT [None]
